FAERS Safety Report 8702540 (Version 5)
Quarter: 2016Q2

REPORT INFORMATION
  Report Type: Spontaneous
  Country: US (occurrence: US)
  Receive Date: 20120803
  Receipt Date: 20160620
  Transmission Date: 20160815
  Serious: Yes (Other)
  Sender: FDA-Public Use
  Company Number: US-PFIZER INC-2012185702

PATIENT
  Age: 31 Year
  Sex: Female
  Weight: 102 kg

DRUGS (3)
  1. LYRICA [Suspect]
     Active Substance: PREGABALIN
     Indication: FIBROMYALGIA
     Dosage: 150 MG, 3X/DAY
     Route: 048
  2. LYRICA [Suspect]
     Active Substance: PREGABALIN
     Indication: PAIN
     Dosage: 150 MG, 4X/DAY
     Route: 048
     Dates: start: 20150128
  3. TOBRAMYCIN. [Concomitant]
     Active Substance: TOBRAMYCIN
     Indication: PAIN
     Dosage: UNK

REACTIONS (2)
  - Somnolence [Unknown]
  - Eye disorder [Unknown]

NARRATIVE: CASE EVENT DATE: 20121028
